FAERS Safety Report 7197195-6 (Version None)
Quarter: 2010Q4

REPORT INFORMATION
  Report Type: 
  Country: None (occurrence: None)
  Receive Date: 20101224
  Receipt Date: 20101213
  Transmission Date: 20110411
  Serious: Yes (Hospitalization)
  Sender: FDA-Public Use
  Company Number: PHHY2010US84432

PATIENT
  Sex: Male
  Weight: 60 kg

DRUGS (1)
  1. EXJADE [Suspect]
     Dosage: 250 MG, QD
     Route: 048
     Dates: start: 20081001, end: 20100901

REACTIONS (1)
  - NEPHROLITHIASIS [None]
